FAERS Safety Report 16844360 (Version 1)
Quarter: 2019Q3

REPORT INFORMATION
  Report Type: Spontaneous
  Country: US (occurrence: US)
  Receive Date: 20190924
  Receipt Date: 20190924
  Transmission Date: 20191005
  Serious: No
  Sender: FDA-Public Use
  Company Number: US-ALLERGAN-1858149US

PATIENT
  Age: 48 Year
  Sex: Male

DRUGS (1)
  1. SAPHRIS [Suspect]
     Active Substance: ASENAPINE MALEATE
     Indication: DEPRESSION
     Dosage: UNKNOWN
     Route: 065
     Dates: start: 201807, end: 201809

REACTIONS (8)
  - Product packaging issue [Unknown]
  - Libido decreased [Recovered/Resolved]
  - Drug ineffective [Unknown]
  - Metabolic disorder [Recovered/Resolved]
  - Migraine [Recovered/Resolved]
  - Fatigue [Recovered/Resolved]
  - Increased appetite [Recovered/Resolved]
  - Cluster headache [Recovered/Resolved]

NARRATIVE: CASE EVENT DATE: 201807
